FAERS Safety Report 6188760-3 (Version None)
Quarter: 2009Q2

REPORT INFORMATION
  Report Type: 
  Country: None (occurrence: None)
  Receive Date: 20090511
  Receipt Date: 20090511
  Transmission Date: 20091009
  Serious: Yes (Life-Threatening)
  Sender: FDA-Public Use
  Company Number: None

PATIENT
  Age: 39 Year
  Sex: Female
  Weight: 89.8122 kg

DRUGS (1)
  1. PHENTERMINE [Suspect]
     Dates: start: 20070608, end: 20090410

REACTIONS (2)
  - DYSPNOEA [None]
  - SYNCOPE [None]
